FAERS Safety Report 12626668 (Version 1)
Quarter: 2016Q3

REPORT INFORMATION
  Report Type: Report from Study
  Country: BR (occurrence: BR)
  Receive Date: 20160805
  Receipt Date: 20160805
  Transmission Date: 20161109
  Serious: Yes (Hospitalization, Other)
  Sender: FDA-Public Use
  Company Number: PHHY2016BR105805

PATIENT
  Sex: Male
  Weight: 62 kg

DRUGS (2)
  1. FORASEQ [Suspect]
     Active Substance: BUDESONIDE\FORMOTEROL FUMARATE
     Dosage: 1 DF(BUDESONIDE 12 MG),(HE TAKES IT ONCE)  UNK
     Route: 055
  2. FORASEQ [Suspect]
     Active Substance: BUDESONIDE\FORMOTEROL FUMARATE
     Indication: DYSPNOEA
     Dosage: 1 DF (BUDESONIDE 12 MG), (SOMETIMES HE TAKES IT TWICE A DAY) UNK
     Route: 055

REACTIONS (17)
  - Pneumonia [Recovering/Resolving]
  - Weight decreased [Unknown]
  - Myocardial infarction [Unknown]
  - Platelet count decreased [Unknown]
  - Ear pain [Unknown]
  - Single functional kidney [Unknown]
  - Hypoacusis [Recovered/Resolved]
  - Product use issue [Unknown]
  - Influenza [Recovering/Resolving]
  - Dyspnoea [Recovering/Resolving]
  - Renal disorder [Unknown]
  - Malaise [Unknown]
  - Catarrh [Recovering/Resolving]
  - Tinnitus [Unknown]
  - Haematemesis [Recovering/Resolving]
  - Cerebrovascular accident [Unknown]
  - Pain [Unknown]
